FAERS Safety Report 11490925 (Version 2)
Quarter: 2015Q3

REPORT INFORMATION
  Report Type: Report from Study
  Country: MX (occurrence: MX)
  Receive Date: 20150910
  Receipt Date: 20150916
  Transmission Date: 20151125
  Serious: Yes (Death, Other)
  Sender: FDA-Public Use
  Company Number: PHHY2015MX109120

PATIENT
  Age: 23 Year
  Sex: Male
  Weight: 107 kg

DRUGS (2)
  1. GLIVEC [Suspect]
     Active Substance: IMATINIB MESYLATE
     Dosage: 800 MG, QD
     Route: 048
     Dates: start: 20150430
  2. GLIVEC [Suspect]
     Active Substance: IMATINIB MESYLATE
     Indication: GASTROINTESTINAL STROMAL TUMOUR
     Dosage: 400 MG, QD
     Route: 048
     Dates: start: 20141217

REACTIONS (9)
  - Dyspnoea [Fatal]
  - Gastrointestinal stromal tumour [Unknown]
  - Cardio-respiratory arrest [Fatal]
  - Anaemia [Fatal]
  - Haematemesis [Fatal]
  - Haemorrhage [Fatal]
  - Pulmonary embolism [Unknown]
  - Malignant neoplasm progression [Unknown]
  - Abdominal pain [Unknown]

NARRATIVE: CASE EVENT DATE: 20150304
